FAERS Safety Report 21500020 (Version 1)
Quarter: 2022Q4

REPORT INFORMATION
  Report Type: Spontaneous
  Country: US (occurrence: US)
  Receive Date: 20221024
  Receipt Date: 20221024
  Transmission Date: 20230112
  Serious: No
  Sender: FDA-Public Use
  Company Number: US-PFIZER INC-PV202200061662

PATIENT
  Age: 26 Year
  Sex: Female

DRUGS (3)
  1. PRISTIQ EXTENDED-RELEASE [Suspect]
     Active Substance: DESVENLAFAXINE SUCCINATE
     Dosage: 50 MG, 2X/DAY
     Route: 048
  2. PRISTIQ EXTENDED-RELEASE [Suspect]
     Active Substance: DESVENLAFAXINE SUCCINATE
     Dosage: 100 MG
  3. PRISTIQ EXTENDED-RELEASE [Suspect]
     Active Substance: DESVENLAFAXINE SUCCINATE
     Dosage: 150 MG, 1X/DAY
     Route: 048

REACTIONS (10)
  - Drug ineffective [Unknown]
  - Off label use [Unknown]
  - Depression [Unknown]
  - Anxiety [Unknown]
  - Tachyphrenia [Unknown]
  - Insomnia [Unknown]
  - Agitation [Unknown]
  - Social avoidant behaviour [Unknown]
  - Asthenia [Unknown]
  - Apathy [Unknown]
